FAERS Safety Report 9376351 (Version 1)
Quarter: 2013Q3

REPORT INFORMATION
  Report Type: Spontaneous
  Country: IT (occurrence: IT)
  Receive Date: 20130701
  Receipt Date: 20130701
  Transmission Date: 20140515
  Serious: Yes (Disabling)
  Sender: FDA-Public Use
  Company Number: IT-BRISTOL-MYERS SQUIBB COMPANY-19038462

PATIENT
  Age: 53 Year
  Sex: Male

DRUGS (2)
  1. ONGLYZA TABS 5 MG [Suspect]
     Indication: TYPE 2 DIABETES MELLITUS
     Dates: start: 20130220, end: 20130620
  2. ESKIM [Concomitant]
     Dosage: CAPS

REACTIONS (1)
  - Pancreatic neoplasm [Unknown]
